FAERS Safety Report 10519465 (Version 1)
Quarter: 2014Q4

REPORT INFORMATION
  Report Type: Spontaneous
  Country: US (occurrence: None)
  Receive Date: 20141014
  Receipt Date: 20141014
  Transmission Date: 20150528
  Serious: No
  Sender: FDA-Public Use
  Company Number: None

PATIENT
  Age: 68 Year
  Sex: Female

DRUGS (10)
  1. DEXAMETHASONE (DECADRON) [Concomitant]
  2. PROCHLORPERAZINE (COMPAZINE) [Concomitant]
  3. ACYCLOVIR (ZOVIRAX) [Concomitant]
  4. ANASTROZOLE (ARIMIDEX) [Concomitant]
  5. PAMIDRONATE (AREDIA) [Concomitant]
  6. ATENOLOL (TENORMIN) [Concomitant]
  7. REVLIMID [Suspect]
     Active Substance: LENALIDOMIDE
     Indication: PLASMA CELL MYELOMA
     Dosage: 10MG DAILY X21D/28D ORALLY
     Route: 048
     Dates: start: 20140915
  8. FISH OIL [Concomitant]
     Active Substance: FISH OIL
  9. ASPIRIN (ASPIR-LOW) [Concomitant]
  10. PROCHLORPERAZONE MALEATE (COMPAZINE) [Concomitant]

REACTIONS (2)
  - Pruritus [None]
  - Muscle spasms [None]

NARRATIVE: CASE EVENT DATE: 20141007
